FAERS Safety Report 7468912-2 (Version None)
Quarter: 2011Q2

REPORT INFORMATION
  Report Type: 
  Country: None (occurrence: None)
  Receive Date: 20110428
  Receipt Date: 20110412
  Transmission Date: 20111010
  Serious: Yes (Other)
  Sender: FDA-Public Use
  Company Number: 031065

PATIENT
  Sex: Female
  Weight: 84.1 kg

DRUGS (8)
  1. METHOTREXATE [Concomitant]
  2. MELOXICAM [Concomitant]
  3. ABILIFY [Concomitant]
  4. PLAQUENIL [Concomitant]
  5. ELMIRON [Concomitant]
  6. CIMZIA [Suspect]
     Indication: RHEUMATOID ARTHRITIS
     Dosage: (400 MG 1X/2 WEEKS, LOADING DOSE WEEKS 0-2-4 SUBCUTANEOUS) ; (200 MG 1X/2 WEEKS SUBCUTANEOUS)
     Route: 058
     Dates: start: 20110126, end: 20110223
  7. CIMZIA [Suspect]
     Indication: RHEUMATOID ARTHRITIS
     Dosage: (400 MG 1X/2 WEEKS, LOADING DOSE WEEKS 0-2-4 SUBCUTANEOUS) ; (200 MG 1X/2 WEEKS SUBCUTANEOUS)
     Route: 058
     Dates: start: 20110309
  8. OXAZEPAM [Concomitant]

REACTIONS (2)
  - DIABETES MELLITUS [None]
  - SLEEP DISORDER [None]
